FAERS Safety Report 9011028 (Version 2)
Quarter: 2013Q2

REPORT INFORMATION
  Report Type: Report from Study
  Country: US (occurrence: US)
  Receive Date: 20130109
  Receipt Date: 20130411
  Transmission Date: 20140414
  Serious: Yes (Hospitalization, Other)
  Sender: FDA-Public Use
  Company Number: US-ABBOTT-13P-163-1030532-00

PATIENT
  Age: 65 Year
  Sex: Female

DRUGS (8)
  1. HUMIRA PEN [Suspect]
     Indication: CROHN^S DISEASE
     Dates: start: 201107, end: 201211
  2. IV FLUID WITH THREE BOTTLES OF UNKNOWN MEDICINE [Suspect]
     Indication: ABDOMINAL PAIN
     Dates: start: 201212
  3. IV FLUID WITH THREE BOTTLES OF UNKNOWN MEDICINE [Suspect]
     Indication: INTESTINAL STENOSIS
  4. APRISO [Concomitant]
     Indication: PRODUCT USED FOR UNKNOWN INDICATION
  5. VALIUM [Concomitant]
     Indication: NERVOUSNESS
  6. FOLIC ACID [Concomitant]
     Indication: PRODUCT USED FOR UNKNOWN INDICATION
  7. TEMAZEPAM [Concomitant]
     Indication: SLEEP DISORDER
     Dosage: AT NIGHT
  8. CALCIUM [Concomitant]
     Indication: OSTEOPOROSIS

REACTIONS (11)
  - Arteriospasm coronary [Not Recovered/Not Resolved]
  - Chest pain [Not Recovered/Not Resolved]
  - Emotional distress [Not Recovered/Not Resolved]
  - Nervousness [Not Recovered/Not Resolved]
  - Diarrhoea [Not Recovered/Not Resolved]
  - Abdominal pain [Not Recovered/Not Resolved]
  - Intestinal stenosis [Not Recovered/Not Resolved]
  - Small intestinal stenosis [Not Recovered/Not Resolved]
  - Hypersomnia [Unknown]
  - Ileitis [Not Recovered/Not Resolved]
  - Large intestinal ulcer [Not Recovered/Not Resolved]
